FAERS Safety Report 23742554 (Version 1)
Quarter: 2024Q2

REPORT INFORMATION
  Report Type: Spontaneous
  Country: US (occurrence: None)
  Receive Date: 20240412
  Receipt Date: 20240412
  Transmission Date: 20240715
  Serious: No
  Sender: FDA-Public Use
  Company Number: None

PATIENT
  Age: 69 Year
  Sex: Male
  Weight: 95 kg

DRUGS (1)
  1. PROHANCE [Suspect]
     Active Substance: GADOTERIDOL
     Indication: Scan with contrast
     Route: 040
     Dates: start: 20240319, end: 20240319

REACTIONS (3)
  - Sneezing [None]
  - Rhinorrhoea [None]
  - Contrast media reaction [None]

NARRATIVE: CASE EVENT DATE: 20240319
